FAERS Safety Report 5979078-X (Version None)
Quarter: 2008Q4

REPORT INFORMATION
  Report Type: 
  Country: None (occurrence: None)
  Receive Date: 20081204
  Receipt Date: 20080718
  Transmission Date: 20090506
  Serious: No
  Sender: FDA-Public Use
  Company Number: US-ABBOTT-08P-163-0464253-00

PATIENT
  Weight: 69.916 kg

DRUGS (7)
  1. TRICOR [Suspect]
     Indication: BLOOD TRIGLYCERIDES
     Route: 048
     Dates: start: 20080225, end: 20080714
  2. CLOPIDOGREL [Concomitant]
     Indication: MYOCARDIAL INFARCTION
     Route: 048
     Dates: start: 20070101
  3. CARVEDILOL [Concomitant]
     Indication: CARDIAC DISORDER
     Route: 048
     Dates: start: 20070101
  4. ENALAPRIL MALEATE [Concomitant]
     Indication: BLOOD PRESSURE
     Dosage: 5 MG TO 2.5 MG TO 5 MG
     Route: 048
     Dates: start: 20070101
  5. ATORVASTATIN CALCIUM [Concomitant]
     Indication: BLOOD CHOLESTEROL
     Route: 048
     Dates: start: 20080401
  6. ACETYLSALICYLIC ACID SRT [Concomitant]
     Indication: ISCHAEMIC HEART DISEASE PROPHYLAXIS
     Route: 048
  7. FERROUS GLUCONATE [Concomitant]
     Indication: MINERAL SUPPLEMENTATION
     Route: 048

REACTIONS (12)
  - ABASIA [None]
  - ABDOMINAL PAIN [None]
  - APHASIA [None]
  - BLOOD PRESSURE FLUCTUATION [None]
  - CHEST PAIN [None]
  - COUGH [None]
  - DYSSTASIA [None]
  - HOT FLUSH [None]
  - PRURITUS GENITAL [None]
  - READING DISORDER [None]
  - RESTLESS LEGS SYNDROME [None]
  - THINKING ABNORMAL [None]
